FAERS Safety Report 5027815-3 (Version None)
Quarter: 2006Q2

REPORT INFORMATION
  Report Type: 
  Country: None (occurrence: None)
  Receive Date: 20060616
  Receipt Date: 20040708
  Transmission Date: 20061013
  Serious: Yes (Hospitalization)
  Sender: FDA-Public Use
  Company Number: 2004UW14102

PATIENT
  Age: 55 Year
  Sex: Female
  Weight: 66.4 kg

DRUGS (10)
  1. CRESTOR [Suspect]
     Indication: BLOOD CHOLESTEROL INCREASED
     Route: 048
     Dates: start: 20040520
  2. CRESTOR [Suspect]
     Route: 048
  3. CRESTOR [Suspect]
     Route: 048
     Dates: start: 20040101, end: 20060101
  4. ZETIA [Concomitant]
  5. CLONAPIN [Concomitant]
  6. BEXTRA [Concomitant]
  7. LOPRESSOR [Concomitant]
  8. AMITRIPTYLINE HCL [Concomitant]
  9. ZANTAC [Concomitant]
  10. KEFLEX [Concomitant]
     Indication: SINUSITIS

REACTIONS (7)
  - BLADDER DISORDER [None]
  - BLOOD GLUCOSE INCREASED [None]
  - DIABETES MELLITUS [None]
  - HEPATIC STEATOSIS [None]
  - HEPATOCELLULAR DAMAGE [None]
  - LIVER FUNCTION TEST ABNORMAL [None]
  - PYREXIA [None]
